FAERS Safety Report 13399254 (Version 1)
Quarter: 2017Q2

REPORT INFORMATION
  Report Type: Spontaneous
  Country: US (occurrence: US)
  Receive Date: 20170404
  Receipt Date: 20170404
  Transmission Date: 20170830
  Serious: No
  Sender: FDA-Public Use
  Company Number: US-B.I. PHARMACEUTICALS,INC./RIDGEFIELD-2017-BI-017907

PATIENT
  Age: 69 Year
  Sex: Male

DRUGS (5)
  1. GABAPENTIN. [Concomitant]
     Active Substance: GABAPENTIN
     Indication: NEUROPATHY PERIPHERAL
     Dosage: 4 CAPSULES BID;  FORM STRENGTH: 300 MG; FORMULATION: CAPSULE
     Route: 048
  2. VITAMIN D3 [Concomitant]
     Active Substance: CHOLECALCIFEROL
     Indication: PRODUCT USED FOR UNKNOWN INDICATION
     Dosage: MONTHLY;  FORM STRENGTH: 50000 IU; FORMULATION: CAPSULE
     Route: 048
  3. ASPIRIN. [Concomitant]
     Active Substance: ASPIRIN
     Indication: PRODUCT USED FOR UNKNOWN INDICATION
     Dosage: 1 TABLET 1 TIME DAILY;  FORM STRENGTH: 81 MG; FORMULATION: TABLET
     Route: 048
  4. OFEV [Suspect]
     Active Substance: NINTEDANIB
     Indication: IDIOPATHIC PULMONARY FIBROSIS
     Dosage: 1 CAPSULE BID;  FORMULATION: CAPSULE; ? ADMINISTRATION CORRECT? YES ?ACTION(S) TAKEN WITH PRODUCT: D
     Route: 048
     Dates: start: 2015, end: 201701
  5. HYDROCODONE COUGH SYRUP [Concomitant]
     Indication: COUGH
     Dosage: 1 TEASPOON MORNING AND NIGHT;  FORMULATION: ORAL SUSPENSION;
     Route: 048

REACTIONS (2)
  - Productive cough [Not Recovered/Not Resolved]
  - Dyspnoea [Not Recovered/Not Resolved]

NARRATIVE: CASE EVENT DATE: 201612
